FAERS Safety Report 9718340 (Version 1)
Quarter: 2013Q4

REPORT INFORMATION
  Report Type: Spontaneous
  Country: US (occurrence: US)
  Receive Date: 20131125
  Receipt Date: 20131125
  Transmission Date: 20140711
  Serious: No
  Sender: FDA-Public Use
  Company Number: US-VIVUS-2013V1000268

PATIENT
  Age: 67 Year
  Sex: Female
  Weight: 86.26 kg

DRUGS (15)
  1. QSYMIA 3.75MG/23MG [Suspect]
     Indication: WEIGHT DECREASED
     Route: 048
     Dates: start: 20130402, end: 20130405
  2. HUMULIN R [Concomitant]
     Indication: DIABETES MELLITUS
     Dosage: DAILY DOSE: 40 UNITS,
     Route: 058
  3. HUMULIN R [Concomitant]
     Dosage: DAILY DOSE: 45 UNITS,
     Route: 058
  4. APIDRA [Concomitant]
     Indication: DIABETES MELLITUS
     Dosage: DAILY DOSE: 30 UNITS,
     Route: 058
  5. APIDRA [Concomitant]
     Dosage: DAILY DOSE: 30 UNITS,
     Route: 058
  6. TRAZODONE [Concomitant]
     Indication: DEPRESSION
     Route: 048
     Dates: start: 2012
  7. CYMBALTA [Concomitant]
     Indication: DEPRESSION
     Route: 048
     Dates: start: 1988
  8. BUSPIRONE [Concomitant]
     Indication: SLEEP DISORDER
     Route: 048
     Dates: start: 2012
  9. CLONAZEPAM [Concomitant]
     Indication: BIPOLAR DISORDER
     Route: 048
     Dates: start: 1988
  10. MIRTAZEPINE [Concomitant]
     Indication: MUSCLE RELAXANT THERAPY
     Route: 048
  11. ROPINIROLE [Concomitant]
     Indication: MUSCLE RELAXANT THERAPY
     Route: 048
  12. PANTOPRAZOLE [Concomitant]
     Indication: GASTROOESOPHAGEAL REFLUX DISEASE
     Route: 048
     Dates: start: 2011
  13. EVISTA [Concomitant]
     Indication: VULVOVAGINAL DRYNESS
     Route: 048
     Dates: start: 2007
  14. SYNTHROID [Concomitant]
     Indication: THYROID DISORDER
     Route: 048
     Dates: start: 1983
  15. HYDROXYZINE [Concomitant]
     Indication: SLEEP DISORDER
     Route: 048
     Dates: start: 2012

REACTIONS (4)
  - Vomiting [Not Recovered/Not Resolved]
  - Abdominal pain upper [Not Recovered/Not Resolved]
  - Mood altered [Not Recovered/Not Resolved]
  - Diarrhoea [Not Recovered/Not Resolved]
